FAERS Safety Report 25474376 (Version 2)
Quarter: 2025Q3

REPORT INFORMATION
  Report Type: Spontaneous
  Country: EU (occurrence: EU)
  Receive Date: 20250624
  Receipt Date: 20250715
  Transmission Date: 20251021
  Serious: Yes (Other)
  Sender: TAKEDA
  Company Number: EU-TAKEDA-2025TUS056361

PATIENT
  Age: 78 Year
  Sex: Female
  Weight: 83 kg

DRUGS (5)
  1. HYQVIA [Suspect]
     Active Substance: HUMAN IMMUNOGLOBULIN G\HYALURONIDASE (HUMAN RECOMBINANT)
     Indication: Product used for unknown indication
  2. AMLODIPINE BESYLATE [Concomitant]
     Active Substance: AMLODIPINE BESYLATE
  3. METAMIZOLE [Concomitant]
     Active Substance: METAMIZOLE
  4. LOPERAMIDE [Concomitant]
     Active Substance: LOPERAMIDE
  5. IVABRADINE [Concomitant]
     Active Substance: IVABRADINE

REACTIONS (4)
  - Depressed level of consciousness [Recovered/Resolved]
  - Allergy to immunoglobulin therapy [Unknown]
  - Malaise [Recovered/Resolved]
  - Nausea [Recovered/Resolved]

NARRATIVE: CASE EVENT DATE: 20230816
